FAERS Safety Report 20354798 (Version 1)
Quarter: 2022Q1

REPORT INFORMATION
  Report Type: Spontaneous
  Country: US (occurrence: None)
  Receive Date: 20220119
  Receipt Date: 20220119
  Transmission Date: 20220423
  Serious: No
  Sender: FDA-Public Use
  Company Number: None

PATIENT
  Age: 37 Year
  Sex: Male
  Weight: 101.6 kg

DRUGS (2)
  1. BUPROPION HYDROCHLORIDE [Suspect]
     Active Substance: BUPROPION HYDROCHLORIDE
     Indication: Anxiety disorder
     Dosage: 300MG 1 DAY PO
     Route: 048
     Dates: start: 202106, end: 202109
  2. BUPROPION HYDROCHLORIDE [Suspect]
     Active Substance: BUPROPION HYDROCHLORIDE
     Indication: Anxiety disorder
     Dosage: 300MG 1 DAY PO
     Route: 048
     Dates: start: 202109

REACTIONS (2)
  - Headache [None]
  - Therapy interrupted [None]
